FAERS Safety Report 5359301-5 (Version None)
Quarter: 2007Q2

REPORT INFORMATION
  Report Type: 
  Country: None (occurrence: None)
  Receive Date: 20070615
  Receipt Date: 20070605
  Transmission Date: 20071010
  Serious: Yes (Hospitalization, Other)
  Sender: FDA-Public Use
  Company Number: US-PFIZER INC-2007046625

PATIENT
  Sex: Female

DRUGS (9)
  1. LYRICA [Suspect]
  2. ARIXTRA [Suspect]
     Indication: COAGULOPATHY
     Dosage: DAILY DOSE:7.5MG
     Route: 058
  3. MIDODRINE HYDROCHLORIDE [Concomitant]
  4. LEXAPRO [Concomitant]
  5. ALL OTHER THERAPEUTIC PRODUCTS [Concomitant]
  6. EZETIMIBE [Concomitant]
  7. ADVAIR DISKUS 100/50 [Concomitant]
  8. MONTELUKAST SODIUM [Concomitant]
  9. SOLIFENACIN SUCCINATE [Concomitant]

REACTIONS (3)
  - INCORRECT DRUG ADMINISTRATION DURATION [None]
  - SPINAL FUSION SURGERY [None]
  - THROMBOSIS [None]
